FAERS Safety Report 26142478 (Version 1)
Quarter: 2025Q4

REPORT INFORMATION
  Report Type: Report from Study
  Country: US (occurrence: US)
  Receive Date: 20251210
  Receipt Date: 20251210
  Transmission Date: 20260117
  Serious: Yes (Hospitalization, Other)
  Sender: ABBVIE
  Company Number: US-ABBVIE-5870900

PATIENT
  Age: 75 Year
  Sex: Male
  Weight: 149.68 kg

DRUGS (11)
  1. HUMIRA [Suspect]
     Active Substance: ADALIMUMAB
     Indication: Psoriasis
     Dosage: CITRATE FREE, FORM STRENGTH: 40 MG?LAST ADMIN DATE 2025
     Route: 058
     Dates: start: 20250627
  2. HUMIRA [Suspect]
     Active Substance: ADALIMUMAB
     Dosage: CITRATE FREE, FORM STRENGTH: 40 MG
     Route: 058
     Dates: start: 20230719, end: 2024
  3. ALBUTEROL [Concomitant]
     Active Substance: ALBUTEROL
     Indication: Respiratory disorder
     Dosage: FREQUENCY TEXT: 2 PUFFS BEFORE SLEEP
     Route: 055
  4. ROSUVASTATIN [Concomitant]
     Active Substance: ROSUVASTATIN
     Indication: Blood cholesterol increased
  5. TYLENOL [Concomitant]
     Active Substance: ACETAMINOPHEN
     Indication: Arthralgia
     Dosage: FREQUENCY TEXT: 2 PILLS IN THE MORNING AND EVENING
  6. ASPIRIN [Concomitant]
     Active Substance: ASPIRIN
     Indication: Cardiac disorder
     Dosage: LOW DOSE
  7. FUROSEMIDE [Concomitant]
     Active Substance: FUROSEMIDE
     Indication: Fluid retention
  8. VITAMIN D3 [Concomitant]
     Active Substance: CHOLECALCIFEROL
     Indication: Product used for unknown indication
  9. FLUTICASONE [Concomitant]
     Active Substance: FLUTICASONE
     Indication: Respiratory disorder
  10. MONTELUKAST [Concomitant]
     Active Substance: MONTELUKAST
     Indication: Respiration abnormal
  11. LEVOTHYROXINE [Concomitant]
     Active Substance: LEVOTHYROXINE
     Indication: Hypothyroidism

REACTIONS (13)
  - Arthropathy [Not Recovered/Not Resolved]
  - Pain in extremity [Recovered/Resolved]
  - Drug resistance [Not Recovered/Not Resolved]
  - Psoriasis [Not Recovered/Not Resolved]
  - Hip fracture [Recovered/Resolved]
  - Arthritis infective [Recovered/Resolved]
  - Bacterial sepsis [Recovered/Resolved]
  - Loss of personal independence in daily activities [Recovered/Resolved]
  - Osteoarthritis [Recovered/Resolved]
  - Therapeutic product effect decreased [Not Recovered/Not Resolved]
  - Thinking abnormal [Recovered/Resolved]
  - Gait disturbance [Recovering/Resolving]
  - Endocarditis [Recovered/Resolved]

NARRATIVE: CASE EVENT DATE: 20240101
